FAERS Safety Report 10200857 (Version 2)
Quarter: 2014Q3

REPORT INFORMATION
  Report Type: Spontaneous
  Country: US (occurrence: US)
  Receive Date: 20140528
  Receipt Date: 20140729
  Transmission Date: 20150326
  Serious: Yes (Hospitalization, Other)
  Sender: FDA-Public Use
  Company Number: US-JNJFOC-20140510120

PATIENT
  Age: 83 Year
  Sex: Female
  Weight: 48.7 kg

DRUGS (3)
  1. ZESTRIL [Concomitant]
     Active Substance: LISINOPRIL
     Route: 048
  2. DOXIL [Suspect]
     Active Substance: DOXORUBICIN HYDROCHLORIDE
     Indication: UTERINE CANCER
     Route: 042
     Dates: start: 20140116, end: 20140217
  3. DOXIL [Suspect]
     Active Substance: DOXORUBICIN HYDROCHLORIDE
     Indication: UTERINE CANCER
     Route: 042
     Dates: start: 20140319, end: 20140417

REACTIONS (2)
  - Off label use [Unknown]
  - Renal failure chronic [Recovering/Resolving]

NARRATIVE: CASE EVENT DATE: 20140116
